FAERS Safety Report 5472439-7 (Version None)
Quarter: 2007Q3

REPORT INFORMATION
  Report Type: 
  Country: None (occurrence: None)
  Receive Date: 20070927
  Receipt Date: 20070919
  Transmission Date: 20080115
  Serious: Yes (Disabling)
  Sender: FDA-Public Use
  Company Number: CH-GUERBET-20070011

PATIENT
  Age: 45 Year
  Sex: Female

DRUGS (11)
  1. DOTAREM: / MEGLUMINE GADOTERATE [Suspect]
     Indication: NUCLEAR MAGNETIC RESONANCE IMAGING
     Dosage: DOSAGE: 15, ML MILLILITRE (S), 1, 1, TOTAL INTRAVENOUS (NOT OTHERWISE SPECIFIED)
     Route: 042
     Dates: start: 20020410, end: 20020410
  2. DOTAREM: / MEGLUMINE GADOTERATE [Suspect]
     Indication: NUCLEAR MAGNETIC RESONANCE IMAGING
     Dosage: DOSAGE: 15, ML MILLILITRE (S), 1, 1, TOTAL INTRAVENOUS (NOT OTHERWISE SPECIFIED)
     Route: 042
     Dates: start: 20020828, end: 20020828
  3. OMNISCAN [Concomitant]
  4. OMNISCAN [Concomitant]
  5. OMNISCAN [Concomitant]
  6. OMNISCAN [Concomitant]
  7. OMNISCAN [Concomitant]
  8. OMNISCAN [Concomitant]
  9. OMNISCAN [Concomitant]
  10. OMNISCAN [Concomitant]
  11. INSULIN / INSULIN [Concomitant]

REACTIONS (1)
  - NEPHROGENIC SYSTEMIC FIBROSIS [None]
